FAERS Safety Report 13704307 (Version 1)
Quarter: 2017Q2

REPORT INFORMATION
  Report Type: Spontaneous
  Country: US (occurrence: US)
  Receive Date: 20170630
  Receipt Date: 20170630
  Transmission Date: 20170830
  Serious: No
  Sender: FDA-Public Use
  Company Number: US-ENDO PHARMACEUTICALS INC-2016-005427

PATIENT
  Sex: Female
  Weight: 72.19 kg

DRUGS (3)
  1. LORAZEPAM TABLETS 1MG [Suspect]
     Active Substance: LORAZEPAM
     Indication: ANXIETY
  2. LORAZEPAM TABLETS 1MG [Suspect]
     Active Substance: LORAZEPAM
     Route: 048
  3. LORAZEPAM TABLETS 1MG [Suspect]
     Active Substance: LORAZEPAM
     Dosage: HALF A TABLET
     Route: 048
     Dates: start: 201506

REACTIONS (7)
  - Nightmare [Unknown]
  - Feeling abnormal [Unknown]
  - Nervousness [Unknown]
  - Muscle twitching [Unknown]
  - Hyperacusis [Unknown]
  - Drug ineffective [Unknown]
  - Paraesthesia [Unknown]
